FAERS Safety Report 12464962 (Version 5)
Quarter: 2016Q3

REPORT INFORMATION
  Report Type: Report from Study
  Country: US (occurrence: US)
  Receive Date: 20160614
  Receipt Date: 20160923
  Transmission Date: 20161109
  Serious: Yes (Hospitalization)
  Sender: FDA-Public Use
  Company Number: US-BAYER-2016-044296

PATIENT
  Age: 42 Year
  Sex: Male
  Weight: 68.27 kg

DRUGS (9)
  1. ADEMPAS [Suspect]
     Active Substance: RIOCIGUAT
     Indication: PULMONARY HYPERTENSION
     Dosage: 2.5 MG, TID
     Route: 048
  2. ORENITRAM [Concomitant]
     Active Substance: TREPROSTINIL
     Dosage: 4.5 MG, TID
  3. ADEMPAS [Suspect]
     Active Substance: RIOCIGUAT
     Indication: PULMONARY HYPERTENSION
     Dosage: UNK
     Route: 048
     Dates: start: 20140418
  4. REMODULIN [Concomitant]
     Active Substance: TREPROSTINIL
  5. ADEMPAS [Suspect]
     Active Substance: RIOCIGUAT
     Indication: PULMONARY HYPERTENSION
     Dosage: 2.5 MG, TID
     Route: 048
     Dates: start: 20160609
  6. COUMADIN [Concomitant]
     Active Substance: WARFARIN SODIUM
  7. UPTRAVI [Concomitant]
     Active Substance: SELEXIPAG
  8. ORENITRAM [Concomitant]
     Active Substance: TREPROSTINIL
     Dosage: 4 MG, TID
  9. ADEMPAS [Suspect]
     Active Substance: RIOCIGUAT
     Indication: PULMONARY HYPERTENSION
     Dosage: 2.5 MG, TID
     Route: 048

REACTIONS (17)
  - Ulcer [Unknown]
  - Pulmonary arterial hypertension [Not Recovered/Not Resolved]
  - Staphylococcal infection [Unknown]
  - Dyspnoea [Unknown]
  - Cardiac discomfort [None]
  - Septic shock [Unknown]
  - Cardiac failure [None]
  - Wound [Not Recovered/Not Resolved]
  - Nausea [Unknown]
  - Pain in jaw [Unknown]
  - Staphylococcal sepsis [None]
  - Decreased appetite [None]
  - Pulmonary hypertension [Unknown]
  - Pulmonary haemorrhage [None]
  - General physical health deterioration [None]
  - Oedema [Unknown]
  - Nausea [None]
